FAERS Safety Report 5879405-8 (Version None)
Quarter: 2008Q3

REPORT INFORMATION
  Report Type: 
  Country: None (occurrence: None)
  Receive Date: 20080912
  Receipt Date: 20080910
  Transmission Date: 20090109
  Serious: Yes (Hospitalization)
  Sender: FDA-Public Use
  Company Number: B0535388A

PATIENT
  Age: 75 Year
  Sex: Female

DRUGS (3)
  1. ARIXTRA [Suspect]
     Indication: PHLEBITIS
     Dosage: 7.5MG PER DAY
     Route: 058
     Dates: start: 20080715, end: 20080717
  2. LOVENOX [Suspect]
     Indication: PHLEBITIS
     Dosage: .6ML TWICE PER DAY
     Route: 058
     Dates: start: 20080712, end: 20080714
  3. PREVISCAN [Suspect]
     Indication: PHLEBITIS
     Dosage: 10MG IN THE MORNING
     Route: 048
     Dates: start: 20080715, end: 20080718

REACTIONS (7)
  - ANXIETY [None]
  - ARTHRALGIA [None]
  - BLOOD CREATININE INCREASED [None]
  - CHEST PAIN [None]
  - GROIN PAIN [None]
  - MOBILITY DECREASED [None]
  - MUSCLE HAEMORRHAGE [None]
